FAERS Safety Report 15578227 (Version 1)
Quarter: 2018Q4

REPORT INFORMATION
  Report Type: Spontaneous
  Country: FR (occurrence: FR)
  Receive Date: 20181102
  Receipt Date: 20181102
  Transmission Date: 20190205
  Serious: Yes (Other)
  Sender: FDA-Public Use
  Company Number: FR-BRISTOL-MYERS SQUIBB COMPANY-BMS-2018-101492

PATIENT
  Age: 75 Year
  Sex: Male
  Weight: 48 kg

DRUGS (8)
  1. MODIODAL [Concomitant]
     Active Substance: MODAFINIL
     Indication: NARCOLEPSY
     Dosage: 3 DF, DAILY
     Route: 048
     Dates: start: 2000
  2. ZYLORIC [Suspect]
     Active Substance: ALLOPURINOL
     Indication: HYPERURICAEMIA
     Dosage: 1 DF, DAILY
     Route: 048
     Dates: start: 2011, end: 201807
  3. OXYBUTYNINE                        /00538901/ [Concomitant]
     Active Substance: OXYBUTYNIN
     Indication: MICTURITION URGENCY
     Dosage: 5 MG, DAILY
     Route: 048
     Dates: start: 2017
  4. ENTRESTO [Suspect]
     Active Substance: SACUBITRIL\VALSARTAN
     Indication: CARDIAC FAILURE
     Dosage: 2 DF, DAILY
     Route: 048
     Dates: start: 201711
  5. SPIRONOLACTONE. [Concomitant]
     Active Substance: SPIRONOLACTONE
     Indication: PRODUCT USED FOR UNKNOWN INDICATION
     Dosage: 25 MG, DAILY
     Route: 048
     Dates: start: 2011, end: 201807
  6. ELIQUIS [Suspect]
     Active Substance: APIXABAN
     Indication: CEREBROVASCULAR ACCIDENT PROPHYLAXIS
     Dosage: 2 DF, DAILY
     Route: 048
     Dates: start: 201711
  7. BISOCE [Concomitant]
     Active Substance: BISOPROLOL
     Indication: PRODUCT USED FOR UNKNOWN INDICATION
     Dosage: 1 DF, DAILY
     Route: 048
     Dates: start: 201806
  8. PANTOPRAZOLE [Concomitant]
     Active Substance: PANTOPRAZOLE
     Indication: HYPERCHLORHYDRIA
     Dosage: 1 DF, DAILY
     Route: 048
     Dates: start: 2017

REACTIONS (2)
  - Dermatitis bullous [Recovered/Resolved]
  - Pruritus [Not Recovered/Not Resolved]

NARRATIVE: CASE EVENT DATE: 201712
